FAERS Safety Report 20084592 (Version 2)
Quarter: 2021Q4

REPORT INFORMATION
  Report Type: Spontaneous
  Country: US (occurrence: US)
  Receive Date: 20211118
  Receipt Date: 20211125
  Transmission Date: 20220303
  Serious: Yes (Other)
  Sender: FDA-Public Use
  Company Number: US-SANOFI-00853982

PATIENT
  Age: 64 Year
  Sex: Female

DRUGS (1)
  1. LANTUS SOLOSTAR [Suspect]
     Active Substance: INSULIN GLARGINE
     Indication: Type 2 diabetes mellitus
     Dosage: 40 IU, QD
     Route: 065
     Dates: start: 201712

REACTIONS (5)
  - Diabetes mellitus inadequate control [Unknown]
  - Product quality issue [Unknown]
  - Fear of death [Unknown]
  - Insulin resistance [Unknown]
  - Glycosylated haemoglobin abnormal [Unknown]
